FAERS Safety Report 9343934 (Version 1)
Quarter: 2013Q2

REPORT INFORMATION
  Report Type: Spontaneous
  Country: RO (occurrence: None)
  Receive Date: 20130610
  Receipt Date: 20130610
  Transmission Date: 20140414
  Serious: Yes (Hospitalization, Other)
  Sender: FDA-Public Use
  Company Number: 2013P1006728

PATIENT
  Sex: 0

DRUGS (1)
  1. VALPROATE SODIUM [Suspect]
     Indication: SUICIDE ATTEMPT

REACTIONS (10)
  - Suicide attempt [None]
  - Toxicity to various agents [None]
  - Mental status changes [None]
  - Coma [None]
  - Tachycardia [None]
  - Metabolic acidosis [None]
  - Hypotension [None]
  - Hyperammonaemia [None]
  - Pancreatic enzymes increased [None]
  - Thrombocytopenia [None]
